FAERS Safety Report 7678345-1 (Version None)
Quarter: 2011Q3

REPORT INFORMATION
  Report Type: 
  Country: None (occurrence: None)
  Receive Date: 20110811
  Receipt Date: 20110808
  Transmission Date: 20111222
  Serious: Yes (Other)
  Sender: FDA-Public Use
  Company Number: US-PFIZER INC-2011139813

PATIENT
  Sex: Female

DRUGS (7)
  1. GEODON [Suspect]
     Indication: DEPRESSION
     Dosage: 120 MG, DAILY
     Route: 048
  2. WELLBUTRIN [Concomitant]
     Indication: MAJOR DEPRESSION
  3. LAMICTAL [Concomitant]
     Indication: MAJOR DEPRESSION
  4. CYMBALTA [Concomitant]
     Indication: MAJOR DEPRESSION
     Dosage: UNK
     Dates: start: 20090101, end: 20100401
  5. WELLBUTRIN [Concomitant]
     Indication: DEPRESSION
     Dosage: 750 MG, DAILY
     Dates: start: 20090101
  6. LAMICTAL [Concomitant]
     Indication: DEPRESSION
     Dosage: 200 MG, DAILY
     Dates: start: 20100401
  7. GEODON [Suspect]
     Indication: MAJOR DEPRESSION
     Dosage: 160 MG, DAILY
     Route: 048
     Dates: start: 20090101

REACTIONS (1)
  - EXTRAPYRAMIDAL DISORDER [None]
